FAERS Safety Report 17237767 (Version 2)
Quarter: 2020Q1

REPORT INFORMATION
  Report Type: Spontaneous
  Country: CZ (occurrence: CZ)
  Receive Date: 20200106
  Receipt Date: 20200130
  Transmission Date: 20200409
  Serious: Yes (Life-Threatening)
  Sender: FDA-Public Use
  Company Number: CZ-MYLANLABS-2020M1001402

PATIENT
  Age: 5 Year
  Sex: Female
  Weight: 21 kg

DRUGS (1)
  1. MONTELUKAST [Suspect]
     Active Substance: MONTELUKAST SODIUM
     Indication: PRODUCT USED FOR UNKNOWN INDICATION
     Dosage: UNK UNK, QD(3 OT, QD)
     Route: 048
     Dates: start: 20140615, end: 20140617

REACTIONS (5)
  - Tremor [Recovered/Resolved]
  - Depression [Recovered/Resolved with Sequelae]
  - Movement disorder [Recovered/Resolved]
  - Hallucination [Recovered/Resolved with Sequelae]
  - Sleep terror [Recovered/Resolved with Sequelae]

NARRATIVE: CASE EVENT DATE: 20140615
